FAERS Safety Report 15013017 (Version 1)
Quarter: 2018Q2

REPORT INFORMATION
  Report Type: Spontaneous
  Country: JP (occurrence: JP)
  Receive Date: 20180614
  Receipt Date: 20180614
  Transmission Date: 20180711
  Serious: Yes (Hospitalization)
  Sender: FDA-Public Use
  Company Number: JP-PURDUE-GBR-2018-0056671

PATIENT
  Sex: Female

DRUGS (13)
  1. CYMBALTA [Concomitant]
     Active Substance: DULOXETINE HYDROCHLORIDE
     Indication: SENSORY DISTURBANCE
  2. GOSHAKUSAN [Concomitant]
     Indication: PAIN IN EXTREMITY
     Dosage: 5 G, UNK
  3. GOSHAKUSAN [Concomitant]
     Indication: FEELING COLD
  4. TSUDOSAN [Concomitant]
     Indication: PAIN IN EXTREMITY
     Dosage: 7.5 MG, UNK
     Route: 048
  5. NORSPAN [Suspect]
     Active Substance: BUPRENORPHINE
     Indication: PAIN IN EXTREMITY
     Dosage: 10 MG, Q1H
     Route: 062
  6. NORSPAN [Suspect]
     Active Substance: BUPRENORPHINE
     Indication: SENSORY DISTURBANCE
     Dosage: 5 MG, Q1H
     Route: 062
  7. PREDNISOLONE. [Concomitant]
     Active Substance: PREDNISOLONE
     Indication: PAIN IN EXTREMITY
  8. GOSHAKUSAN [Concomitant]
     Indication: SENSORY DISTURBANCE
  9. TSUDOSAN [Concomitant]
     Indication: VASCULAR INSUFFICIENCY
  10. PREDNISOLONE. [Concomitant]
     Active Substance: PREDNISOLONE
     Indication: SENSORY DISTURBANCE
     Dosage: 5 MG, UNK
  11. PREDNISOLONE. [Concomitant]
     Active Substance: PREDNISOLONE
     Indication: OEDEMA PERIPHERAL
  12. TSUDOSAN [Concomitant]
     Indication: SENSORY DISTURBANCE
  13. CYMBALTA [Concomitant]
     Active Substance: DULOXETINE HYDROCHLORIDE
     Indication: PAIN IN EXTREMITY
     Dosage: 40 MG, UNK

REACTIONS (5)
  - Oedema [Unknown]
  - Inadequate analgesia [Unknown]
  - Pleural effusion [Recovering/Resolving]
  - Pneumonia [Recovering/Resolving]
  - Blood potassium decreased [Unknown]
